FAERS Safety Report 8872897 (Version 1)
Quarter: 2012Q4

REPORT INFORMATION
  Report Type: 
  Country: US (occurrence: US)
  Receive Date: 20121030
  Receipt Date: 20121030
  Transmission Date: 20130627
  Serious: No
  Sender: FDA-Public Use
  Company Number: US-ABBOTT-12P-163-0991327-00

PATIENT
  Age: 22 None
  Sex: Female
  Weight: 58.11 kg

DRUGS (4)
  1. LUPRON DEPOT [Suspect]
     Indication: ENDOMETRIOSIS
     Dates: start: 2010, end: 2010
  2. AMITRIPTYLINE [Concomitant]
     Indication: FIBROMYALGIA
  3. VITAMIN D [Concomitant]
     Indication: ARTHRALGIA
  4. SEASONALE [Concomitant]
     Indication: CONTRACEPTION

REACTIONS (12)
  - Menstrual disorder [Not Recovered/Not Resolved]
  - Hot flush [Recovered/Resolved]
  - Abscess [Not Recovered/Not Resolved]
  - Mood swings [Recovered/Resolved]
  - Alopecia [Not Recovered/Not Resolved]
  - Dysuria [Not Recovered/Not Resolved]
  - Urinary tract infection [Recovered/Resolved]
  - Cystitis [Recovered/Resolved]
  - Kidney infection [Recovered/Resolved]
  - Renal haemorrhage [Unknown]
  - Ear infection [Not Recovered/Not Resolved]
  - Impaired healing [Unknown]
